FAERS Safety Report 11904881 (Version 1)
Quarter: 2016Q1

REPORT INFORMATION
  Report Type: Spontaneous
  Country: US (occurrence: US)
  Receive Date: 20160108
  Receipt Date: 20160108
  Transmission Date: 20160526
  Serious: No
  Sender: FDA-Public Use
  Company Number: US-ROCHE-1654649

PATIENT
  Sex: Female

DRUGS (1)
  1. RITUXAN [Suspect]
     Active Substance: RITUXIMAB
     Indication: POLYMYOSITIS
     Dosage: 1000MG/100ML WAS ADDED TO 500ML OF NORMAL SALINE, RESULTING IN 600ML,
     Route: 042

REACTIONS (3)
  - Pharyngeal disorder [Unknown]
  - Intentional product misuse [Unknown]
  - Off label use [Unknown]
